FAERS Safety Report 11565014 (Version 1)
Quarter: 2015Q3

REPORT INFORMATION
  Report Type: Spontaneous
  Country: US (occurrence: US)
  Receive Date: 20150916
  Receipt Date: 20150916
  Transmission Date: 20151125
  Serious: No
  Sender: FDA-Public Use
  Company Number: US-ELI_LILLY_AND_COMPANY-US200904001545

PATIENT
  Age: 74 Year
  Sex: Female

DRUGS (4)
  1. SYNTHROID [Concomitant]
     Active Substance: LEVOTHYROXINE SODIUM
  2. FORTEO [Suspect]
     Active Substance: TERIPARATIDE
     Indication: BONE DISORDER
     Dosage: UNK, UNK
     Dates: start: 20090330, end: 20090405
  3. ASPIRIN. [Concomitant]
     Active Substance: ASPIRIN
  4. FORTEO [Suspect]
     Active Substance: TERIPARATIDE
     Dosage: UNK, UNKNOWN
     Dates: start: 20090407

REACTIONS (9)
  - Aura [Recovering/Resolving]
  - Hypokinesia [Unknown]
  - Sleep disorder [Unknown]
  - Road traffic accident [Unknown]
  - Muscle rigidity [Unknown]
  - Micturition disorder [Unknown]
  - Migraine [Recovering/Resolving]
  - Restless legs syndrome [Unknown]
  - Dyskinesia [Unknown]

NARRATIVE: CASE EVENT DATE: 2009
